FAERS Safety Report 8957634 (Version 2)
Quarter: 2012Q4

REPORT INFORMATION
  Report Type: 
  Country: US (occurrence: US)
  Receive Date: 20121211
  Receipt Date: 20121220
  Transmission Date: 20130627
  Serious: No
  Sender: FDA-Public Use
  Company Number: US-PFIZER INC-2012308048

PATIENT
  Age: 58 Year
  Sex: Female
  Weight: 66.2 kg

DRUGS (4)
  1. CELEBREX [Suspect]
     Indication: SPINAL DISORDER
     Dosage: 200 mg, 2x/day
     Route: 048
     Dates: start: 20121128, end: 2012
  2. CELEBREX [Suspect]
     Indication: BACK PAIN
  3. CELEBREX [Suspect]
     Indication: ANKYLOSING SPONDYLITIS
  4. ACETYLSALICYLIC ACID [Concomitant]
     Dosage: 81 mg, daily

REACTIONS (9)
  - Erythema [Recovered/Resolved]
  - Malaise [Recovered/Resolved]
  - Feeling abnormal [Recovered/Resolved]
  - Chest pain [Recovered/Resolved]
  - Abdominal pain [Recovered/Resolved]
  - Abdominal pain upper [Recovered/Resolved]
  - Nausea [Recovered/Resolved]
  - Headache [Recovered/Resolved]
  - Diarrhoea [Recovered/Resolved]
